FAERS Safety Report 9676116 (Version 1)
Quarter: 2013Q4

REPORT INFORMATION
  Report Type: Spontaneous
  Country: US (occurrence: US)
  Receive Date: 20131107
  Receipt Date: 20131107
  Transmission Date: 20140711
  Serious: Yes (Hospitalization)
  Sender: FDA-Public Use
  Company Number: US-ASTRAZENECA-2013SE80500

PATIENT
  Age: 719 Month
  Sex: Female
  Weight: 83.9 kg

DRUGS (6)
  1. TOPROL-XL [Suspect]
     Indication: HYPERTENSION
     Dosage: METOPROLOL SUCCINATE; 100 MG, DAILY
     Route: 048
  2. TOPROL-XL [Suspect]
     Indication: HYPERTENSION
     Route: 048
     Dates: start: 200405
  3. TIAZAC [Concomitant]
     Indication: BLOOD PRESSURE ABNORMAL
  4. TIAZAC [Concomitant]
     Indication: BLOOD PRESSURE ABNORMAL
     Dosage: GENERIC
  5. VITORIN [Concomitant]
     Indication: BLOOD CHOLESTEROL ABNORMAL
     Dosage: 10 -20MG DAILY
  6. SPIRANOLACTONE [Concomitant]
     Indication: BLOOD PRESSURE ABNORMAL

REACTIONS (6)
  - Cerebrovascular accident [Unknown]
  - Gait disturbance [Unknown]
  - Speech disorder [Unknown]
  - Therapeutic response unexpected with drug substitution [Unknown]
  - Headache [Unknown]
  - Atrial fibrillation [Not Recovered/Not Resolved]
